FAERS Safety Report 16039503 (Version 1)
Quarter: 2019Q2

REPORT INFORMATION
  Report Type: Spontaneous
  Country: US (occurrence: US)
  Receive Date: 20190305
  Receipt Date: 20190305
  Transmission Date: 20190711
  Serious: Yes (Hospitalization, Disabling, Other)
  Sender: FDA-Public Use
  Company Number: None

PATIENT
  Age: 43 Year
  Sex: Female
  Weight: 89.1 kg

DRUGS (1)
  1. CREON [Suspect]
     Active Substance: PANCRELIPASE AMYLASE\PANCRELIPASE LIPASE\PANCRELIPASE PROTEASE
     Indication: PANCREATIC FAILURE
     Dosage: ?          QUANTITY:1 CAPSULE(S);OTHER FREQUENCY:FIVE TIMES A DAY;?
     Route: 048
     Dates: start: 20190222, end: 20190305

REACTIONS (7)
  - Muscle spasms [None]
  - Lip swelling [None]
  - Vomiting [None]
  - Abdominal pain [None]
  - Pyrexia [None]
  - Rash [None]
  - Cough [None]

NARRATIVE: CASE EVENT DATE: 20190304
